FAERS Safety Report 8764147 (Version 3)
Quarter: 2013Q1

REPORT INFORMATION
  Report Type: Report from Study
  Country: AU (occurrence: AU)
  Receive Date: 20120831
  Receipt Date: 20130110
  Transmission Date: 20140127
  Serious: Yes (Hospitalization)
  Sender: FDA-Public Use
  Company Number: AU-BRISTOL-MYERS SQUIBB COMPANY-16871204

PATIENT
  Age: 74 Year
  Sex: Female
  Weight: 82 kg

DRUGS (8)
  1. ABATACEPT [Suspect]
     Indication: RHEUMATOID ARTHRITIS
     Route: 042
     Dates: start: 20120718
  2. METHOTREXATE [Suspect]
  3. SALAZOPYRIN [Concomitant]
  4. NIFEDIPINE [Concomitant]
  5. BETALOC [Concomitant]
  6. FOLIC ACID [Concomitant]
  7. PREDNISONE [Concomitant]
  8. LISINOPRIL [Concomitant]

REACTIONS (7)
  - Haemoglobin decreased [Unknown]
  - Abdominal discomfort [Unknown]
  - Lethargy [Unknown]
  - Dyspnoea [Unknown]
  - Abdominal distension [Unknown]
  - Weight increased [Recovered/Resolved]
  - Blood glucose increased [Recovered/Resolved]
